APPROVED DRUG PRODUCT: METFORMIN HYDROCHLORIDE
Active Ingredient: METFORMIN HYDROCHLORIDE
Strength: 1GM
Dosage Form/Route: TABLET, EXTENDED RELEASE;ORAL
Application: A213344 | Product #002 | TE Code: AB3
Applicant: GRANULES INDIA LTD
Approved: Jan 12, 2021 | RLD: No | RS: No | Type: RX